FAERS Safety Report 5667127-8 (Version None)
Quarter: 2008Q1

REPORT INFORMATION
  Report Type: 
  Country: None (occurrence: None)
  Receive Date: 20080315
  Receipt Date: 20080110
  Transmission Date: 20080703
  Serious: No
  Sender: FDA-Public Use
  Company Number: US-ABBOTT-08P-163-0433513-00

PATIENT
  Sex: Female

DRUGS (2)
  1. HUMIRA [Suspect]
     Indication: RHEUMATOID ARTHRITIS
     Route: 058
     Dates: start: 20050101, end: 20070701
  2. HUMIRA [Suspect]
     Dosage: PEN
     Route: 058
     Dates: start: 20070701

REACTIONS (5)
  - CANDIDIASIS [None]
  - OEDEMA MOUTH [None]
  - ORAL DISCOMFORT [None]
  - STOMATITIS [None]
  - TONGUE DISORDER [None]
